FAERS Safety Report 18385347 (Version 1)
Quarter: 2020Q4

REPORT INFORMATION
  Report Type: Spontaneous
  Country: ES (occurrence: ES)
  Receive Date: 20201015
  Receipt Date: 20201015
  Transmission Date: 20210114
  Serious: Yes (Other)
  Sender: FDA-Public Use
  Company Number: ES-SUN PHARMACEUTICAL INDUSTRIES LTD-2020R1-263937

PATIENT
  Age: 63 Year
  Sex: Male

DRUGS (2)
  1. ABIRATERONE. [Suspect]
     Active Substance: ABIRATERONE ACETATE
     Indication: HORMONE THERAPY
     Dosage: 1000 MILLIGRAM, DAILY
     Route: 065
  2. PREDNISONE. [Concomitant]
     Active Substance: PREDNISONE
     Indication: PRODUCT USED FOR UNKNOWN INDICATION
     Dosage: 5 MILLIGRAM, BID
     Route: 065

REACTIONS (1)
  - Rash maculo-papular [Recovered/Resolved]
